FAERS Safety Report 16581591 (Version 1)
Quarter: 2019Q3

REPORT INFORMATION
  Report Type: Report from Study
  Country: US (occurrence: US)
  Receive Date: 20190716
  Receipt Date: 20190716
  Transmission Date: 20191004
  Serious: No
  Sender: FDA-Public Use
  Company Number: PHEH2019US029290

PATIENT
  Sex: Male

DRUGS (1)
  1. AFINITOR [Suspect]
     Active Substance: EVEROLIMUS
     Indication: ASTROCYTOMA, LOW GRADE
     Dosage: (ALTERNATING WITH 5MG EVERY OTHER DAY)
     Route: 048
     Dates: start: 20110623

REACTIONS (2)
  - Weight increased [Unknown]
  - Appetite disorder [Unknown]
